FAERS Safety Report 10245908 (Version 1)
Quarter: 2014Q2

REPORT INFORMATION
  Report Type: Spontaneous
  Country: IT (occurrence: IT)
  Receive Date: 20140619
  Receipt Date: 20140619
  Transmission Date: 20141212
  Serious: Yes (Other)
  Sender: FDA-Public Use
  Company Number: IT-RANBAXY-2014RR-82495

PATIENT
  Age: 3 Year
  Sex: Male

DRUGS (1)
  1. CLARITHROMYCIN [Suspect]
     Indication: PYREXIA
     Dosage: 2 DF, DAILY
     Route: 048
     Dates: start: 20140518, end: 20140524

REACTIONS (2)
  - Drug ineffective [Recovering/Resolving]
  - Otitis media [Recovering/Resolving]
